FAERS Safety Report 5489986-4 (Version None)
Quarter: 2007Q4

REPORT INFORMATION
  Report Type: 
  Country: None (occurrence: None)
  Receive Date: 20071018
  Receipt Date: 20071009
  Transmission Date: 20080405
  Serious: Yes (Disabling)
  Sender: FDA-Public Use
  Company Number: PT-ROCHE-520539

PATIENT
  Age: 46 Year
  Sex: Female

DRUGS (6)
  1. PEGASYS [Suspect]
     Route: 058
     Dates: start: 20070517, end: 20070801
  2. RIBAVIRIN [Concomitant]
     Dates: start: 20070517, end: 20070801
  3. TRIZIVIR [Concomitant]
     Indication: HIV INFECTION
     Route: 048
     Dates: start: 20070201
  4. 1 CONCOMITANT DRUG [Concomitant]
     Indication: NEUTROPENIA
     Dosage: DRUG REPORTED: PEGFILGRASTRIM
     Route: 058
     Dates: start: 20070701, end: 20070801
  5. 1 CONCOMITANT DRUG [Concomitant]
     Indication: ANAEMIA
     Dosage: DRUG REPORTED : ERYTROPOETIN
     Route: 058
     Dates: start: 20070701, end: 20070801
  6. 1 CONCOMITANT DRUG [Concomitant]
     Indication: PAIN
     Dosage: DRUG NAME: IBUPROPHEN
     Route: 048
     Dates: start: 20070501, end: 20070801

REACTIONS (2)
  - ASCITES [None]
  - GENERALISED OEDEMA [None]
